FAERS Safety Report 21086473 (Version 15)
Quarter: 2025Q2

REPORT INFORMATION
  Report Type: Report from Study
  Country: JP (occurrence: JP)
  Receive Date: 20220715
  Receipt Date: 20250623
  Transmission Date: 20250717
  Serious: Yes (Hospitalization, Other)
  Sender: TAKEDA
  Company Number: JP-TAKEDA-2022TJP030870

PATIENT
  Age: 15 Year
  Sex: Female
  Weight: 43.8 kg

DRUGS (6)
  1. TEDUGLUTIDE [Suspect]
     Active Substance: TEDUGLUTIDE
     Indication: Short-bowel syndrome
     Dates: start: 20220312, end: 20220314
  2. TEDUGLUTIDE [Suspect]
     Active Substance: TEDUGLUTIDE
     Dosage: 1.1 MILLIGRAM, QD
     Dates: start: 20220322
  3. TEDUGLUTIDE [Suspect]
     Active Substance: TEDUGLUTIDE
  4. TEDUGLUTIDE [Suspect]
     Active Substance: TEDUGLUTIDE
  5. GLUTAMINE [Concomitant]
     Active Substance: GLUTAMINE
     Indication: Short-bowel syndrome
  6. CARNITINE HYDROCHLORIDE [Concomitant]
     Indication: Short-bowel syndrome

REACTIONS (8)
  - Metabolic acidosis [Recovered/Resolved]
  - Dehydration [Recovered/Resolved]
  - Device related sepsis [Recovering/Resolving]
  - Device related sepsis [Recovered/Resolved]
  - Device related sepsis [Recovered/Resolved]
  - Device related sepsis [Recovered/Resolved]
  - Erythema nodosum [Recovering/Resolving]
  - Coronavirus infection [Recovered/Resolved]

NARRATIVE: CASE EVENT DATE: 20220312
